FAERS Safety Report 7617789-0 (Version None)
Quarter: 2011Q3

REPORT INFORMATION
  Report Type: 
  Country: None (occurrence: None)
  Receive Date: 20110718
  Receipt Date: 20110713
  Transmission Date: 20111222
  Serious: Yes (Other)
  Sender: FDA-Public Use
  Company Number: US-JNJFOC-20100907951

PATIENT
  Sex: Female
  Weight: 65 kg

DRUGS (8)
  1. LAMICTAL [Concomitant]
     Indication: BIPOLAR DISORDER
     Route: 048
  2. LYRICA [Concomitant]
     Indication: PAIN
     Route: 048
  3. TOPAMAX [Suspect]
     Indication: HEADACHE
     Route: 048
     Dates: end: 20100501
  4. SIMCOR [Concomitant]
     Route: 065
  5. LORAZEPAM [Concomitant]
     Indication: PRODUCT USED FOR UNKNOWN INDICATION
     Dosage: PRN
     Route: 065
  6. MULTI-VITAMINS [Concomitant]
     Route: 065
  7. SIMVASTATIN [Concomitant]
     Indication: BLOOD CHOLESTEROL
     Route: 048
  8. TRAZODONE [Concomitant]
     Indication: SLEEP DISORDER
     Route: 048

REACTIONS (7)
  - AMAUROSIS FUGAX [None]
  - DYSARTHRIA [None]
  - APHASIA [None]
  - VISUAL IMPAIRMENT [None]
  - CONFUSIONAL STATE [None]
  - DIPLOPIA [None]
  - HEARING IMPAIRED [None]
